FAERS Safety Report 5481250-2 (Version None)
Quarter: 2007Q4

REPORT INFORMATION
  Report Type: 
  Country: None (occurrence: None)
  Receive Date: 20071010
  Receipt Date: 20070814
  Transmission Date: 20080405
  Serious: Yes (Other)
  Sender: FDA-Public Use
  Company Number: US-PURDUE-USA_2007_0029011

PATIENT
  Sex: Male
  Weight: 95 kg

DRUGS (2)
  1. OXYCONTIN [Suspect]
     Indication: PAIN
     Dosage: 20 MG, SEE TEXT
     Route: 042
     Dates: start: 19970912, end: 20050401
  2. OXYIR [Concomitant]
     Indication: BREAKTHROUGH PAIN

REACTIONS (3)
  - DRUG ABUSER [None]
  - HEPATITIS C [None]
  - LIVER DISORDER [None]
